FAERS Safety Report 6546997-5 (Version None)
Quarter: 2010Q1

REPORT INFORMATION
  Report Type: 
  Country: None (occurrence: None)
  Receive Date: 20100122
  Receipt Date: 20100114
  Transmission Date: 20100710
  Serious: Yes (Death, Life-Threatening)
  Sender: FDA-Public Use
  Company Number: B0567986A

PATIENT
  Age: 68 Year
  Sex: Male
  Weight: 90 kg

DRUGS (11)
  1. PAROXETINE HCL [Suspect]
  2. PARACETAMOL [Suspect]
  3. CODEINE [Suspect]
  4. CANDESARTAN CILEXETIL [Concomitant]
     Dosage: 16MG PER DAY
  5. CETIRIZINE HCL [Concomitant]
     Dosage: 10MG PER DAY
     Route: 048
  6. DIAZEPAM [Concomitant]
     Dosage: 8MG PER DAY
     Route: 048
  7. MOMETASONE FUROATE [Concomitant]
     Dosage: 100MCG PER DAY
     Route: 045
  8. OMEPRAZOLE [Concomitant]
     Dosage: 10MG PER DAY
     Route: 048
  9. SIMVASTATIN [Concomitant]
     Dosage: 80MG PER DAY
  10. ZOPICLONE [Concomitant]
     Dosage: 7.5MG PER DAY
  11. VENLAFAXINE [Concomitant]
     Dates: start: 20090226, end: 20090305

REACTIONS (1)
  - INTENTIONAL OVERDOSE [None]
